FAERS Safety Report 9914564 (Version 2)
Quarter: 2014Q1

REPORT INFORMATION
  Report Type: Spontaneous
  Country: MX (occurrence: MX)
  Receive Date: 20140220
  Receipt Date: 20140220
  Transmission Date: 20141002
  Serious: Yes (Other)
  Sender: FDA-Public Use
  Company Number: PHHY2014MX012095

PATIENT
  Age: 58 Year
  Sex: Female

DRUGS (2)
  1. ACLASTA [Suspect]
     Indication: OSTEOPENIA
     Dosage: 5 MG/100 ML ANNUAL
     Route: 042
     Dates: start: 20120217
  2. ACLASTA [Suspect]
     Indication: OFF LABEL USE
     Dosage: 5 MG/100 ML ANNUAL
     Route: 042
     Dates: start: 20130314

REACTIONS (10)
  - Granuloma [Not Recovered/Not Resolved]
  - Mass [Not Recovered/Not Resolved]
  - Gingival disorder [Not Recovered/Not Resolved]
  - Concomitant disease progression [Not Recovered/Not Resolved]
  - Tooth disorder [Not Recovered/Not Resolved]
  - Bone disorder [Unknown]
  - Anxiety [Unknown]
  - Bone pain [Recovered/Resolved]
  - Osteopenia [Unknown]
  - Disease progression [Unknown]
